FAERS Safety Report 6802542-8 (Version None)
Quarter: 2010Q2

REPORT INFORMATION
  Report Type: 
  Country: None (occurrence: None)
  Receive Date: 20100628
  Receipt Date: 20100616
  Transmission Date: 20101027
  Serious: Yes (Hospitalization)
  Sender: FDA-Public Use
  Company Number: GB-EISAI INC.-E7273-00158-CLI-GB

PATIENT
  Sex: Female

DRUGS (5)
  1. TARGRETIN [Suspect]
     Route: 048
     Dates: start: 20100127, end: 20100513
  2. GEMCITABINE HCL [Suspect]
     Route: 041
     Dates: end: 20100414
  3. LEVOTHYROXINE SODIUM [Concomitant]
     Dates: start: 20100315, end: 20100517
  4. ATORVASTATIN [Concomitant]
     Dates: start: 20100315, end: 20100517
  5. FENOFIBRATE [Concomitant]
     Dates: start: 20100121, end: 20100604

REACTIONS (2)
  - FATIGUE [None]
  - PAIN [None]
